FAERS Safety Report 4551713-2 (Version None)
Quarter: 2005Q1

REPORT INFORMATION
  Report Type: 
  Country: None (occurrence: None)
  Receive Date: 20050113
  Receipt Date: 20041229
  Transmission Date: 20050727
  Serious: Yes (Other)
  Sender: FDA-Public Use
  Company Number: FR-JNJFOC-20050101677

PATIENT
  Age: 29 Year
  Sex: Female

DRUGS (1)
  1. TRAMADOL HCL [Suspect]
     Indication: ANAL ABSCESS
     Route: 049

REACTIONS (3)
  - HYPERTHYROIDISM [None]
  - TACHYCARDIA [None]
  - WEIGHT DECREASED [None]
